FAERS Safety Report 8344425-0 (Version None)
Quarter: 2012Q2

REPORT INFORMATION
  Report Type: 
  Country: None (occurrence: None)
  Receive Date: 20120508
  Receipt Date: 20120502
  Transmission Date: 20120825
  Serious: Yes (Other)
  Sender: FDA-Public Use
  Company Number: US-BAYER-2012-043466

PATIENT
  Age: 29 Year
  Sex: Female

DRUGS (4)
  1. DROSPIRENONE AND ETHINYL ESTRADIOL [Suspect]
     Dosage: UNK
     Dates: start: 20110501, end: 20111201
  2. YAZ [Suspect]
     Dosage: UNK
     Dates: start: 20110501, end: 20111201
  3. YASMIN [Suspect]
     Dosage: UNK
     Dates: start: 20110501, end: 20111201
  4. BEYAZ [Suspect]
     Dosage: UNK
     Dates: start: 20110501, end: 20111201

REACTIONS (4)
  - DEEP VEIN THROMBOSIS [None]
  - INJURY [None]
  - PAIN [None]
  - EMOTIONAL DISTRESS [None]
